FAERS Safety Report 7064270-6 (Version None)
Quarter: 2010Q4

REPORT INFORMATION
  Report Type: 
  Country: None (occurrence: None)
  Receive Date: 20101027
  Receipt Date: 20101019
  Transmission Date: 20110411
  Serious: Yes (Other)
  Sender: FDA-Public Use
  Company Number: US-JNJFOC-20101006178

PATIENT
  Sex: Female
  Weight: 72.58 kg

DRUGS (11)
  1. SIMPONI [Suspect]
     Indication: RHEUMATOID ARTHRITIS
     Route: 058
  2. ARAVA [Concomitant]
     Indication: RHEUMATOID ARTHRITIS
     Route: 048
  3. PREMARIN [Concomitant]
     Indication: HORMONE REPLACEMENT THERAPY
     Route: 048
  4. DIOVAN [Concomitant]
     Indication: HYPERTENSION
     Route: 048
  5. LEVOTHYROXINE [Concomitant]
     Indication: HYPOTHYROIDISM
     Route: 048
  6. LEXAPRO [Concomitant]
     Indication: DEPRESSION
     Route: 048
  7. PROTONIX [Concomitant]
     Indication: GASTROOESOPHAGEAL REFLUX DISEASE
     Route: 048
  8. PREDNISONE [Concomitant]
     Indication: OSTEOARTHRITIS
     Route: 048
  9. PREDNISONE [Concomitant]
     Indication: RHEUMATOID ARTHRITIS
     Route: 048
  10. PLAVIX [Concomitant]
     Indication: COAGULOPATHY
     Route: 048
  11. PLAVIX [Concomitant]
     Indication: CEREBROVASCULAR ACCIDENT
     Route: 048

REACTIONS (7)
  - ASTHENIA [None]
  - DEPRESSION [None]
  - HEADACHE [None]
  - MUSCLE FATIGUE [None]
  - PAIN IN EXTREMITY [None]
  - PARAESTHESIA [None]
  - WITHDRAWAL SYNDROME [None]
